FAERS Safety Report 5329673-6 (Version None)
Quarter: 2007Q2

REPORT INFORMATION
  Report Type: 
  Country: None (occurrence: None)
  Receive Date: 20070227
  Receipt Date: 20061211
  Transmission Date: 20071010
  Serious: Yes (Hospitalization, Disabling)
  Sender: FDA-Public Use
  Company Number: 391972

PATIENT
  Age: 26 Year
  Sex: Female
  Weight: 59 kg

DRUGS (9)
  1. ACCUTANE [Suspect]
     Indication: ACNE
     Dosage: ORAL
     Route: 048
     Dates: start: 19940914, end: 20010415
  2. COMPAZINE [Concomitant]
  3. ORTHO-NOVUM (ETHINYLESTRADIOL/MESTRANOL/NORETHISTERONE) [Concomitant]
  4. ORTHO TRI-CYCLEN [Concomitant]
  5. ADALAT [Concomitant]
  6. ZYRTEC [Concomitant]
  7. BENADRYL (ACRIVASTINE/AMMONIUM CHLORIDECAMPHOR/DIPHENHYDRAMINEMENTHOL/ [Concomitant]
  8. NASACORT [Concomitant]
  9. HERBAL EXTRACT NOS (BOTANICAL NOS) [Concomitant]

REACTIONS (19)
  - ABDOMINAL PAIN [None]
  - ANAEMIA [None]
  - COLITIS [None]
  - CONSTIPATION [None]
  - DEPRESSION [None]
  - DIABETES MELLITUS [None]
  - DRY SKIN [None]
  - FATIGUE [None]
  - GASTROENTERITIS [None]
  - GASTROINTESTINAL PAIN [None]
  - GASTROOESOPHAGEAL REFLUX DISEASE [None]
  - HEPATIC ENZYME INCREASED [None]
  - HEPATITIS [None]
  - HYPERTENSION [None]
  - HYPERTRIGLYCERIDAEMIA [None]
  - INFLAMMATORY BOWEL DISEASE [None]
  - INSOMNIA [None]
  - IRRITABLE BOWEL SYNDROME [None]
  - PANCREATITIS [None]
